FAERS Safety Report 4530863-0 (Version None)
Quarter: 2004Q4

REPORT INFORMATION
  Report Type: 
  Country: None (occurrence: None)
  Receive Date: 20041217
  Receipt Date: 20020516
  Transmission Date: 20050328
  Serious: Yes (Disabling, Other)
  Sender: FDA-Public Use
  Company Number: US-MERCK-0205USA02191

PATIENT
  Age: 46 Year
  Sex: Male
  Weight: 77 kg

DRUGS (4)
  1. VIOXX [Suspect]
     Indication: POST PROCEDURAL PAIN
     Route: 048
     Dates: start: 20010314, end: 20010729
  2. VIOXX [Suspect]
     Indication: SWELLING
     Route: 048
     Dates: start: 20010314, end: 20010729
  3. DILANTIN [Concomitant]
     Route: 065
  4. ZOLOFT [Concomitant]
     Route: 065

REACTIONS (22)
  - AURA [None]
  - BLOOD CHOLESTEROL INCREASED [None]
  - CARPAL TUNNEL SYNDROME [None]
  - CHEST DISCOMFORT [None]
  - CONVULSION [None]
  - COUGH [None]
  - DYSPNOEA [None]
  - EMOTIONAL DISTRESS [None]
  - ENCEPHALOMALACIA [None]
  - EXCORIATION [None]
  - FEELING ABNORMAL [None]
  - GRAND MAL CONVULSION [None]
  - HEADACHE [None]
  - HYPERTENSION [None]
  - INTERVERTEBRAL DISC DISPLACEMENT [None]
  - NASAL SEPTUM DEVIATION [None]
  - NASAL TURBINATE HYPERTROPHY [None]
  - NOSE DEFORMITY [None]
  - OTITIS MEDIA [None]
  - ROAD TRAFFIC ACCIDENT [None]
  - THORACIC VERTEBRAL FRACTURE [None]
  - TREMOR [None]
